FAERS Safety Report 6544191-5 (Version None)
Quarter: 2010Q1

REPORT INFORMATION
  Report Type: 
  Country: None (occurrence: None)
  Receive Date: 20100119
  Receipt Date: 20100119
  Transmission Date: 20100710
  Serious: Yes (Other)
  Sender: FDA-Public Use
  Company Number: None

PATIENT
  Age: 49 Year
  Sex: Male
  Weight: 138.3471 kg

DRUGS (17)
  1. TYLENOL [Suspect]
     Indication: CHEST PAIN
     Dosage: 1-2 GELCAPS UP TO 4 TIMES DAIL PO
     Route: 048
     Dates: start: 20091217, end: 20100106
  2. TYLENOL [Suspect]
     Indication: COUGH
     Dosage: 1-2 GELCAPS UP TO 4 TIMES DAIL PO
     Route: 048
     Dates: start: 20091217, end: 20100106
  3. TYLENOL [Suspect]
     Indication: HEADACHE
     Dosage: 1-2 GELCAPS UP TO 4 TIMES DAIL PO
     Route: 048
     Dates: start: 20091217, end: 20100106
  4. CRESTOR [Concomitant]
  5. ATACAND [Concomitant]
  6. METFORMIN [Concomitant]
  7. ALLECLEAR [Concomitant]
  8. ALLERTEC [Concomitant]
  9. JANUVIA [Concomitant]
  10. CITALOPRAM HYDROBROMIDE [Concomitant]
  11. LAMOTRIGINE [Concomitant]
  12. COSTCO MULTI VITAMIN [Concomitant]
  13. VENTOLIN [Concomitant]
  14. PREDNISONE [Concomitant]
  15. SYMBICORT [Concomitant]
  16. BREATHING TREATMENT STEROID SHOT [Concomitant]
  17. ANDROGEL [Concomitant]

REACTIONS (4)
  - ASTHMA [None]
  - NASOPHARYNGITIS [None]
  - PRODUCT QUALITY ISSUE [None]
  - SINUSITIS [None]
